FAERS Safety Report 9994943 (Version 1)
Quarter: 2014Q1

REPORT INFORMATION
  Report Type: Spontaneous
  Country: US (occurrence: US)
  Receive Date: 20140311
  Receipt Date: 20140311
  Transmission Date: 20141002
  Serious: Yes (Other)
  Sender: FDA-Public Use
  Company Number: US-BAYER-2014-036101

PATIENT
  Sex: Female

DRUGS (3)
  1. YAZ [Suspect]
     Dosage: UNK
     Dates: start: 2002, end: 2003
  2. YASMIN [Suspect]
     Dosage: UNK
     Dates: start: 2002, end: 2003
  3. OCELLA [Suspect]
     Dosage: UNK
     Dates: start: 2002, end: 2003

REACTIONS (8)
  - Cerebrovascular accident [None]
  - Pain [None]
  - Abdominal pain [None]
  - Injury [None]
  - General physical health deterioration [None]
  - Anxiety [None]
  - Emotional distress [None]
  - Pain [None]
